FAERS Safety Report 12536008 (Version 2)
Quarter: 2016Q3

REPORT INFORMATION
  Report Type: Spontaneous
  Country: US (occurrence: US)
  Receive Date: 20160707
  Receipt Date: 20160721
  Transmission Date: 20161109
  Serious: No
  Sender: FDA-Public Use
  Company Number: US-BAYER-2016-118602

PATIENT
  Sex: Female

DRUGS (1)
  1. STAXYN [Suspect]
     Active Substance: VARDENAFIL HYDROCHLORIDE TRIHYDRATE
     Dosage: 1 DF, QD
     Route: 048
     Dates: start: 2015

REACTIONS (6)
  - Exposure via partner [None]
  - Chest discomfort [None]
  - Hypoaesthesia oral [None]
  - Dyspnoea [None]
  - Nausea [None]
  - Heart rate increased [None]
